FAERS Safety Report 18797270 (Version 2)
Quarter: 2021Q2

REPORT INFORMATION
  Report Type: Spontaneous
  Country: CH (occurrence: CH)
  Receive Date: 20210128
  Receipt Date: 20210409
  Transmission Date: 20210717
  Serious: Yes (Hospitalization)
  Sender: FDA-Public Use
  Company Number: CH-ASTRAZENECA-2021A012149

PATIENT
  Age: 83 Year
  Sex: Female

DRUGS (10)
  1. ESOMEP [Suspect]
     Active Substance: ESOMEPRAZOLE
     Indication: ULCER HAEMORRHAGE
     Dosage: UNK
     Route: 048
     Dates: start: 20201024
  2. ESOMEP I.V. [Suspect]
     Active Substance: ESOMEPRAZOLE
     Indication: ULCER HAEMORRHAGE
     Dosage: 160.0MG ONCE/SINGLE ADMINISTRATION
     Route: 065
     Dates: start: 20201023, end: 20201025
  3. PANTOPRAZOL [PANTOPRAZOLE] [Concomitant]
     Active Substance: PANTOPRAZOLE
     Indication: HELICOBACTER GASTRITIS
     Route: 065
     Dates: end: 20201023
  4. BELOC ZOK [Concomitant]
     Active Substance: METOPROLOL SUCCINATE
     Indication: ASTHMA
     Dosage: UNK
  5. ESOMEP [Suspect]
     Active Substance: ESOMEPRAZOLE
     Indication: ULCER HAEMORRHAGE
     Route: 048
     Dates: start: 20201025, end: 20201026
  6. URICONORM [Suspect]
     Active Substance: ALLOPURINOL
     Indication: GOUT
     Route: 048
  7. VITAMIN D3 [Concomitant]
     Active Substance: CHOLECALCIFEROL
     Indication: HYPERTENSION
     Dosage: UNK
  8. ESOMEP I.V. [Suspect]
     Active Substance: ESOMEPRAZOLE
     Indication: ULCER HAEMORRHAGE
     Dosage: 80.0MG ONCE/SINGLE ADMINISTRATION
     Route: 042
     Dates: start: 20201023, end: 20201023
  9. BELOC ZOK [Concomitant]
     Active Substance: METOPROLOL SUCCINATE
     Indication: HYPERTENSION
     Dosage: UNK
  10. VITAMIN D3 [Concomitant]
     Active Substance: CHOLECALCIFEROL
     Indication: ASTHMA
     Dosage: UNK

REACTIONS (3)
  - Blood count abnormal [Recovering/Resolving]
  - Neutropenia [Recovering/Resolving]
  - Haemoglobin decreased [Recovering/Resolving]

NARRATIVE: CASE EVENT DATE: 20201024
